FAERS Safety Report 19476808 (Version 1)
Quarter: 2021Q2

REPORT INFORMATION
  Report Type: Spontaneous
  Country: US (occurrence: US)
  Receive Date: 20210630
  Receipt Date: 20210630
  Transmission Date: 20210717
  Serious: No
  Sender: FDA-Public Use
  Company Number: US-PFIZER INC-2021268655

PATIENT
  Age: 74 Year
  Sex: Female

DRUGS (2)
  1. IRON [Suspect]
     Active Substance: IRON
     Indication: COLON CANCER
     Dosage: UNK
     Dates: start: 20210310
  2. BRAFTOVI [Suspect]
     Active Substance: ENCORAFENIB
     Indication: COLON CANCER
     Dosage: 75 MG, 4X/DAY
     Dates: start: 20210310

REACTIONS (5)
  - Malaise [Unknown]
  - Swelling [Not Recovered/Not Resolved]
  - Allergic reaction to excipient [Unknown]
  - Flushing [Unknown]
  - Erythema [Not Recovered/Not Resolved]

NARRATIVE: CASE EVENT DATE: 20210409
